FAERS Safety Report 20297910 (Version 1)
Quarter: 2022Q1

REPORT INFORMATION
  Report Type: Spontaneous
  Country: CN (occurrence: CN)
  Receive Date: 20220105
  Receipt Date: 20220105
  Transmission Date: 20220424
  Serious: Yes (Other)
  Sender: FDA-Public Use
  Company Number: CN-SA-SAC20211231000016

PATIENT
  Age: 1 Day
  Sex: Female

DRUGS (2)
  1. ENOXAPARIN SODIUM [Suspect]
     Active Substance: ENOXAPARIN SODIUM
     Indication: Venous thrombosis limb
     Dosage: 0.4 ML
     Route: 058
     Dates: start: 20211105, end: 20211111
  2. CEFOPERAZONE SODIUM [Suspect]
     Active Substance: CEFOPERAZONE SODIUM
     Indication: Chronic obstructive pulmonary disease
     Route: 041
     Dates: start: 20211105, end: 20211111

REACTIONS (2)
  - Coagulopathy [Recovered/Resolved]
  - Haematuria [Recovered/Resolved]

NARRATIVE: CASE EVENT DATE: 20211111
